FAERS Safety Report 14072286 (Version 1)
Quarter: 2017Q4

REPORT INFORMATION
  Report Type: Spontaneous
  Country: BE (occurrence: BE)
  Receive Date: 20171011
  Receipt Date: 20171011
  Transmission Date: 20180321
  Serious: Yes (Other)
  Sender: FDA-Public Use
  Company Number: BE-SUN PHARMACEUTICAL INDUSTRIES LTD-2015R1-104877

PATIENT
  Age: 75 Year
  Sex: Male

DRUGS (3)
  1. OXALIPLATIN. [Suspect]
     Active Substance: OXALIPLATIN
     Indication: COLORECTAL CANCER METASTATIC
     Dosage: 12 CYCLES
     Route: 065
  2. FLUOROURACIL. [Concomitant]
     Active Substance: FLUOROURACIL
     Indication: COLORECTAL CANCER METASTATIC
     Dosage: 12 CYCLES
     Route: 065
  3. FOLINIC ACID [Concomitant]
     Active Substance: LEUCOVORIN
     Indication: COLORECTAL CANCER METASTATIC
     Dosage: 12 CYCLES
     Route: 065

REACTIONS (7)
  - Decreased appetite [Unknown]
  - Neurotoxicity [Recovering/Resolving]
  - Weight decreased [Unknown]
  - Venoocclusive liver disease [Recovering/Resolving]
  - Hepatotoxicity [Recovering/Resolving]
  - Autonomic neuropathy [Recovering/Resolving]
  - Ascites [Recovering/Resolving]
